FAERS Safety Report 10231064 (Version 4)
Quarter: 2014Q3

REPORT INFORMATION
  Report Type: Spontaneous
  Country: US (occurrence: US)
  Receive Date: 20140611
  Receipt Date: 20140811
  Transmission Date: 20150326
  Serious: Yes (Hospitalization)
  Sender: FDA-Public Use
  Company Number: US-BRISTOL-MYERS SQUIBB COMPANY-20723607

PATIENT
  Age: 75 Year
  Sex: Female
  Weight: 90.25 kg

DRUGS (13)
  1. ACETYLSALICYLIC ACID [Concomitant]
     Active Substance: ASPIRIN
  2. LOSARTAN POTASSIUM + HCTZ [Concomitant]
     Active Substance: HYDROCHLOROTHIAZIDE\LOSARTAN
     Dosage: 1DF=50/12.5
  3. VITAMIN D [Concomitant]
     Active Substance: CHOLECALCIFEROL
  4. ATORVASTATIN [Concomitant]
     Active Substance: ATORVASTATIN
  5. FAMOTIDINE. [Concomitant]
     Active Substance: FAMOTIDINE
  6. BYDUREON [Suspect]
     Active Substance: EXENATIDE
     Indication: TYPE 2 DIABETES MELLITUS
     Dosage: INTERRU:17-APR-2014?NO OF INJ:9
     Route: 058
     Dates: start: 20140220, end: 20140417
  7. PEPCID [Concomitant]
     Active Substance: FAMOTIDINE
  8. PANTOPRAZOLE [Concomitant]
     Active Substance: PANTOPRAZOLE SODIUM
  9. NOVOLOG [Suspect]
     Active Substance: INSULIN ASPART
     Indication: TYPE 2 DIABETES MELLITUS
     Dosage: 1 DF: 30 UNITS (EVERY EACH MEAL) ?ALSO 50 UNITS?ONGOING
     Route: 058
     Dates: start: 20120403
  10. LANTUS [Suspect]
     Active Substance: INSULIN GLARGINE
     Dosage: 1 DF: 50 UNITS EVERY MORNING?PEN?ONGOING
     Route: 058
     Dates: start: 20120403
  11. NITROGLYCERINE [Concomitant]
     Active Substance: NITROGLYCERIN
  12. METOPROLOL [Concomitant]
     Active Substance: METOPROLOL
  13. VITAMIN C [Concomitant]
     Active Substance: ASCORBIC ACID

REACTIONS (5)
  - Nausea [Recovered/Resolved]
  - Gastroenteritis [Recovered/Resolved]
  - Vomiting [Recovered/Resolved]
  - Leukocytosis [Recovered/Resolved]
  - Blood glucose abnormal [Recovered/Resolved]

NARRATIVE: CASE EVENT DATE: 20140418
